FAERS Safety Report 5388532-3 (Version None)
Quarter: 2007Q3

REPORT INFORMATION
  Report Type: 
  Country: None (occurrence: None)
  Receive Date: 20070711
  Receipt Date: 20070702
  Transmission Date: 20080115
  Serious: Yes (Death, Life-Threatening)
  Sender: FDA-Public Use
  Company Number: 16881

PATIENT
  Age: 71 Year
  Sex: Female

DRUGS (1)
  1. ACETYLCYSTEINE [Suspect]

REACTIONS (4)
  - ANAPHYLACTIC REACTION [None]
  - BRONCHOSPASM [None]
  - INFUSION RELATED REACTION [None]
  - RESPIRATORY ARREST [None]
